FAERS Safety Report 5421168-4 (Version None)
Quarter: 2007Q3

REPORT INFORMATION
  Report Type: 
  Country: None (occurrence: None)
  Receive Date: 20070816
  Receipt Date: 20070809
  Transmission Date: 20080115
  Serious: Yes (Life-Threatening, Hospitalization, Other)
  Sender: FDA-Public Use
  Company Number: 07082216

PATIENT
  Age: 32 Year
  Sex: Female

DRUGS (2)
  1. ARGATROBAN (ARGATROBAN) [Suspect]
     Indication: HEPARIN-INDUCED THROMBOCYTOPENIA
  2. WARFARIN SODIUM [Suspect]
     Indication: HEPARIN-INDUCED THROMBOCYTOPENIA

REACTIONS (2)
  - ACTIVATED PARTIAL THROMBOPLASTIN TIME PROLONGED [None]
  - INTERNATIONAL NORMALISED RATIO INCREASED [None]
